FAERS Safety Report 20565535 (Version 1)
Quarter: 2022Q1

REPORT INFORMATION
  Report Type: Report from Study
  Country: US (occurrence: US)
  Receive Date: 20220308
  Receipt Date: 20220308
  Transmission Date: 20220423
  Serious: Yes (Other)
  Sender: FDA-Public Use
  Company Number: US-AMGEN-USASL2022036740

PATIENT
  Age: 61 Year
  Sex: Female

DRUGS (1)
  1. REPATHA [Suspect]
     Active Substance: EVOLOCUMAB
     Indication: Blood cholesterol increased
     Dosage: 140 MILLIGRAM, Q2WK
     Route: 065

REACTIONS (8)
  - Seizure [Recovering/Resolving]
  - Insomnia [Recovering/Resolving]
  - Ill-defined disorder [Unknown]
  - Visual impairment [Not Recovered/Not Resolved]
  - Balance disorder [Recovering/Resolving]
  - Tendon pain [Recovering/Resolving]
  - Plantar fasciitis [Recovering/Resolving]
  - Pain [Recovering/Resolving]
